FAERS Safety Report 4839836-1 (Version None)
Quarter: 2005Q4

REPORT INFORMATION
  Report Type: 
  Country: None (occurrence: None)
  Receive Date: 20051129
  Receipt Date: 20051004
  Transmission Date: 20060501
  Serious: Yes (Disabling)
  Sender: FDA-Public Use
  Company Number: NL-SANOFI-SYNTHELABO-A01200506924

PATIENT
  Sex: Male
  Weight: 70 kg

DRUGS (8)
  1. ELOXATIN [Suspect]
     Indication: COLORECTAL CANCER
     Route: 042
     Dates: start: 20050729, end: 20050919
  2. XELODA [Suspect]
     Indication: COLORECTAL CANCER
     Route: 048
     Dates: start: 20050729, end: 20050919
  3. LATANOPROST [Concomitant]
     Indication: GLAUCOMA
     Dosage: CONCENTRATION IS 50 MCG/ML
     Route: 047
     Dates: start: 20040101
  4. BETAXOLOL [Concomitant]
     Dosage: CONCENTRATION 5 MG/ML
     Route: 047
     Dates: start: 20040101
  5. ACETYLSALICYLIC ACID [Concomitant]
     Route: 048
     Dates: start: 20040101
  6. GRANISETRON [Concomitant]
     Indication: NAUSEA
     Route: 048
     Dates: start: 20050729, end: 20050819
  7. METOCLOPRAMIDE [Concomitant]
     Indication: NAUSEA
     Dosage: 30-40 MG DAILY
     Route: 048
     Dates: start: 20050729, end: 20050819
  8. LOPERAMIDE [Concomitant]
     Indication: DIARRHOEA
     Dosage: UNK
     Route: 048
     Dates: start: 20050729

REACTIONS (8)
  - AGEUSIA [None]
  - CONDITION AGGRAVATED [None]
  - EYE DISORDER [None]
  - GLAUCOMA [None]
  - MUCOUS MEMBRANE DISORDER [None]
  - NEUROPATHY [None]
  - OPTIC NERVE DISORDER [None]
  - PERFORMANCE STATUS DECREASED [None]
